FAERS Safety Report 18319818 (Version 2)
Quarter: 2020Q4

REPORT INFORMATION
  Report Type: Spontaneous
  Country: US (occurrence: US)
  Receive Date: 20200928
  Receipt Date: 20201104
  Transmission Date: 20210113
  Serious: No
  Sender: FDA-Public Use
  Company Number: US-ASTRAZENECA-2020SF22034

PATIENT
  Sex: Male
  Weight: 104.3 kg

DRUGS (1)
  1. BYDUREON BCISE [Suspect]
     Active Substance: EXENATIDE
     Indication: TYPE 2 DIABETES MELLITUS
     Route: 058

REACTIONS (10)
  - Injection site pruritus [Unknown]
  - Injection site pain [Unknown]
  - Injection site injury [Unknown]
  - Injection site haemorrhage [Unknown]
  - Weight decreased [Unknown]
  - Device leakage [Unknown]
  - Injection site mass [Unknown]
  - Injection site erythema [Unknown]
  - Intentional product misuse [Unknown]
  - Incorrect dose administered by device [Unknown]
